FAERS Safety Report 6215035-6 (Version None)
Quarter: 2009Q2

REPORT INFORMATION
  Report Type: 
  Country: None (occurrence: None)
  Receive Date: 20090604
  Receipt Date: 20081114
  Transmission Date: 20091009
  Serious: No
  Sender: FDA-Public Use
  Company Number: US-ASTRAZENECA-2008UW25537

PATIENT
  Age: 60 Year
  Sex: Female
  Weight: 62.1 kg

DRUGS (6)
  1. PRILOSEC [Suspect]
     Indication: DYSPEPSIA
     Route: 048
     Dates: start: 20081001
  2. PRILOSEC [Suspect]
     Indication: GASTROOESOPHAGEAL REFLUX DISEASE
     Route: 048
     Dates: start: 20081001
  3. DETROL [Concomitant]
  4. LEVOTHYROXINE SODIUM [Concomitant]
  5. VITAMIN B-12 [Concomitant]
  6. VITAMIN D [Concomitant]

REACTIONS (1)
  - DYSPEPSIA [None]
